FAERS Safety Report 14300190 (Version 1)
Quarter: 2017Q4

REPORT INFORMATION
  Report Type: Spontaneous
  Country: US (occurrence: US)
  Receive Date: 20171219
  Receipt Date: 20171219
  Transmission Date: 20180321
  Serious: No
  Sender: FDA-Public Use
  Company Number: US-TEVA-779774USA

PATIENT
  Sex: Female

DRUGS (1)
  1. ZITHROMAX [Suspect]
     Active Substance: AZITHROMYCIN DIHYDRATE
     Indication: EAR INFECTION
     Route: 065
     Dates: start: 20170612, end: 20170616

REACTIONS (6)
  - Drug ineffective [Unknown]
  - Hypoacusis [Unknown]
  - Ear pain [Unknown]
  - Ear discomfort [Unknown]
  - Sinus congestion [Unknown]
  - Feeling abnormal [Unknown]

NARRATIVE: CASE EVENT DATE: 20170612
